FAERS Safety Report 5465054-2 (Version None)
Quarter: 2007Q3

REPORT INFORMATION
  Report Type: 
  Country: None (occurrence: None)
  Receive Date: 20070820
  Receipt Date: 20070515
  Transmission Date: 20080115
  Serious: No
  Sender: FDA-Public Use
  Company Number: TPA2007A01079

PATIENT
  Age: 45 Year
  Sex: Female
  Weight: 60.782 kg

DRUGS (4)
  1. ROZEREM [Suspect]
     Indication: POOR QUALITY SLEEP
     Dosage: 8 MG, HS, PER ORAL
     Route: 048
     Dates: start: 20070511
  2. EFFEXOR XR [Concomitant]
  3. DIOVAN [Suspect]
  4. BIRTH CONTROL PILLS (ORAL CONTRACEPTIVE NOS) (PILL) [Concomitant]

REACTIONS (2)
  - DRUG INEFFECTIVE [None]
  - MIDDLE INSOMNIA [None]
